FAERS Safety Report 22050884 (Version 2)
Quarter: 2023Q1

REPORT INFORMATION
  Report Type: Spontaneous
  Country: US (occurrence: US)
  Receive Date: 20230301
  Receipt Date: 20230314
  Transmission Date: 20230418
  Serious: Yes (Life-Threatening, Hospitalization, Other)
  Sender: FDA-Public Use
  Company Number: US-PFIZER INC-PV202300036598

PATIENT
  Age: 4 Decade
  Sex: Male

DRUGS (18)
  1. VANCOMYCIN HYDROCHLORIDE [Suspect]
     Active Substance: VANCOMYCIN HYDROCHLORIDE
     Indication: Neutropenic sepsis
     Dosage: UNK
  2. VANCOMYCIN HYDROCHLORIDE [Suspect]
     Active Substance: VANCOMYCIN HYDROCHLORIDE
     Indication: Gastroenteritis astroviral
  3. VANCOMYCIN HYDROCHLORIDE [Suspect]
     Active Substance: VANCOMYCIN HYDROCHLORIDE
     Indication: Escherichia infection
  4. VANCOMYCIN HYDROCHLORIDE [Suspect]
     Active Substance: VANCOMYCIN HYDROCHLORIDE
     Indication: Campylobacter infection
  5. MEROPENEM [Suspect]
     Active Substance: MEROPENEM
     Indication: Neutropenic sepsis
     Dosage: UNK
  6. MEROPENEM [Suspect]
     Active Substance: MEROPENEM
     Indication: Gastroenteritis astroviral
  7. MEROPENEM [Suspect]
     Active Substance: MEROPENEM
     Indication: Escherichia infection
  8. MEROPENEM [Suspect]
     Active Substance: MEROPENEM
     Indication: Campylobacter infection
  9. ETOPOSIDE [Suspect]
     Active Substance: ETOPOSIDE
     Indication: Testis cancer
     Dosage: UNK
  10. CISPLATIN [Suspect]
     Active Substance: CISPLATIN
     Indication: Testis cancer
     Dosage: UNK
  11. PIPERACILLIN AND TAZOBACTAM [Concomitant]
     Active Substance: PIPERACILLIN SODIUM\TAZOBACTAM SODIUM
     Indication: Neutropenic sepsis
     Dosage: UNK
  12. PIPERACILLIN AND TAZOBACTAM [Concomitant]
     Active Substance: PIPERACILLIN SODIUM\TAZOBACTAM SODIUM
     Indication: Gastroenteritis astroviral
  13. PIPERACILLIN AND TAZOBACTAM [Concomitant]
     Active Substance: PIPERACILLIN SODIUM\TAZOBACTAM SODIUM
     Indication: Escherichia infection
  14. PIPERACILLIN AND TAZOBACTAM [Concomitant]
     Active Substance: PIPERACILLIN SODIUM\TAZOBACTAM SODIUM
     Indication: Campylobacter infection
  15. MICAFUNGIN [Concomitant]
     Active Substance: MICAFUNGIN
     Indication: Neutropenic sepsis
     Dosage: UNK
  16. MICAFUNGIN [Concomitant]
     Active Substance: MICAFUNGIN
     Indication: Gastroenteritis astroviral
  17. MICAFUNGIN [Concomitant]
     Active Substance: MICAFUNGIN
     Indication: Escherichia infection
  18. MICAFUNGIN [Concomitant]
     Active Substance: MICAFUNGIN
     Indication: Campylobacter infection

REACTIONS (1)
  - Linear IgA disease [Recovering/Resolving]
